FAERS Safety Report 6688788-0 (Version None)
Quarter: 2010Q2

REPORT INFORMATION
  Report Type: 
  Country: None (occurrence: None)
  Receive Date: 20100420
  Receipt Date: 20100409
  Transmission Date: 20101027
  Serious: Yes (Hospitalization)
  Sender: FDA-Public Use
  Company Number: FR-BAXTER-2010BH009576

PATIENT
  Age: 76 Year
  Sex: Female

DRUGS (2)
  1. ENDOXAN BAXTER [Suspect]
     Indication: BREAST CANCER
     Route: 048
     Dates: start: 20100222, end: 20100303
  2. RETACRIT [Suspect]
     Indication: ANAEMIA
     Route: 058
     Dates: start: 20100306, end: 20100306

REACTIONS (1)
  - LIVEDO RETICULARIS [None]
